FAERS Safety Report 20055150 (Version 1)
Quarter: 2021Q4

REPORT INFORMATION
  Report Type: Spontaneous
  Country: US (occurrence: None)
  Receive Date: 20211110
  Receipt Date: 20211110
  Transmission Date: 20220304
  Serious: No
  Sender: FDA-Public Use
  Company Number: None

PATIENT
  Sex: Female

DRUGS (1)
  1. IBRANCE [Suspect]
     Active Substance: PALBOCICLIB
     Indication: Breast cancer
     Dosage: FREQUENCY : DAILY; DAYS 1-21?
     Route: 048
     Dates: start: 20210617

REACTIONS (5)
  - Decreased appetite [None]
  - Nausea [None]
  - Abdominal pain upper [None]
  - Vomiting [None]
  - Drug ineffective [None]
